FAERS Safety Report 5401336-8 (Version None)
Quarter: 2007Q3

REPORT INFORMATION
  Report Type: 
  Country: None (occurrence: None)
  Receive Date: 20070726
  Receipt Date: 20070712
  Transmission Date: 20080115
  Serious: Yes (Hospitalization)
  Sender: FDA-Public Use
  Company Number: GXKR2007GB06015

PATIENT
  Age: 15 Year
  Sex: Female
  Weight: 48 kg

DRUGS (1)
  1. PARACETAMOL (NGX)(PARACETAMOL) TABLET [Suspect]
     Dosage: 96 DF

REACTIONS (3)
  - HYPOKALAEMIA [None]
  - INTENTIONAL OVERDOSE [None]
  - VOMITING [None]
